FAERS Safety Report 9210621 (Version 7)
Quarter: 2019Q2

REPORT INFORMATION
  Report Type: Spontaneous
  Country: US (occurrence: US)
  Receive Date: 20130404
  Receipt Date: 20190509
  Transmission Date: 20190711
  Serious: No
  Sender: FDA-Public Use
  Company Number: US-PFIZER INC-2013103018

PATIENT
  Age: 62 Year
  Sex: Female
  Weight: 84.35 kg

DRUGS (2)
  1. ELELYSO [Suspect]
     Active Substance: TALIGLUCERASE ALFA
     Indication: GAUCHER^S DISEASE
     Dosage: 5200 IU, Q 2 WEEKS
     Route: 042
     Dates: start: 201212
  2. ELELYSO [Suspect]
     Active Substance: TALIGLUCERASE ALFA
     Dosage: 5400 IU, UNK(EVERY 3 WEEKS)
     Route: 042

REACTIONS (17)
  - Intentional product misuse [Unknown]
  - Chills [Recovering/Resolving]
  - Dyspepsia [Unknown]
  - Myalgia [Recovering/Resolving]
  - Hyperhidrosis [Unknown]
  - Fatigue [Unknown]
  - Influenza like illness [Recovering/Resolving]
  - Hypersensitivity [Not Recovered/Not Resolved]
  - Arthralgia [Unknown]
  - Nasal congestion [Not Recovered/Not Resolved]
  - Sinus disorder [Not Recovered/Not Resolved]
  - Peripheral swelling [Unknown]
  - Pyrexia [Recovering/Resolving]
  - Gastrooesophageal reflux disease [Unknown]
  - Cough [Unknown]
  - Headache [Unknown]
  - Joint swelling [Unknown]

NARRATIVE: CASE EVENT DATE: 201303
